FAERS Safety Report 10902174 (Version 1)
Quarter: 2015Q1

REPORT INFORMATION
  Report Type: Spontaneous
  Country: US (occurrence: US)
  Receive Date: 20150310
  Receipt Date: 20150310
  Transmission Date: 20150721
  Serious: No
  Sender: FDA-Public Use
  Company Number: US-CELGENEUS-USA-2015021749

PATIENT
  Age: 77 Year
  Sex: Female
  Weight: 55.39 kg

DRUGS (3)
  1. REVLIMID [Suspect]
     Active Substance: LENALIDOMIDE
     Indication: PLASMACYTOMA
     Route: 048
     Dates: start: 201304
  2. REVLIMID [Suspect]
     Active Substance: LENALIDOMIDE
     Route: 048
     Dates: start: 20141211
  3. REVLIMID [Suspect]
     Active Substance: LENALIDOMIDE
     Route: 048
     Dates: start: 201406

REACTIONS (2)
  - Skin ulcer [Unknown]
  - Infection [Unknown]

NARRATIVE: CASE EVENT DATE: 20150205
